FAERS Safety Report 23990560 (Version 1)
Quarter: 2024Q2

REPORT INFORMATION
  Report Type: Spontaneous
  Country: US (occurrence: US)
  Receive Date: 20240619
  Receipt Date: 20240619
  Transmission Date: 20240716
  Serious: No
  Sender: FDA-Public Use
  Company Number: US-BIOVITRUM-2024-US-008772

PATIENT
  Age: 7 Month
  Sex: Male

DRUGS (1)
  1. SYNAGIS [Suspect]
     Active Substance: PALIVIZUMAB
     Indication: Respiratory distress
     Dosage: EVERY 28DAYS -30DAYS
     Route: 030
     Dates: start: 20231212

REACTIONS (5)
  - Respiratory tract congestion [Unknown]
  - Pyrexia [Unknown]
  - Rash [Unknown]
  - Cough [Unknown]
  - Off label use [Not Recovered/Not Resolved]

NARRATIVE: CASE EVENT DATE: 20231212
